FAERS Safety Report 7941224-6 (Version None)
Quarter: 2011Q4

REPORT INFORMATION
  Report Type: 
  Country: None (occurrence: None)
  Receive Date: 20111128
  Receipt Date: 20111117
  Transmission Date: 20120403
  Serious: Yes (Other)
  Sender: FDA-Public Use
  Company Number: NL-JNJFOC-20111107899

PATIENT
  Sex: Female
  Weight: 80 kg

DRUGS (6)
  1. RISPERDAL [Suspect]
     Indication: BIPOLAR DISORDER
     Dosage: 1-2 MG
     Dates: start: 20080101, end: 20100201
  2. ZYPREXA [Suspect]
     Indication: BIPOLAR DISORDER
     Route: 065
     Dates: start: 20061208
  3. HALDOL [Concomitant]
     Route: 065
  4. RISPERDAL [Suspect]
     Indication: PSYCHOTIC DISORDER
     Dosage: 1-2 MG
     Dates: start: 20080101, end: 20100201
  5. HALDOL [Concomitant]
     Route: 065
     Dates: start: 20100701
  6. ZYPREXA [Suspect]
     Indication: PSYCHOTIC DISORDER
     Route: 065
     Dates: start: 20061208

REACTIONS (2)
  - APHASIA [None]
  - DEPRESSION [None]
